FAERS Safety Report 7347547-6 (Version None)
Quarter: 2011Q1

REPORT INFORMATION
  Report Type: 
  Country: None (occurrence: None)
  Receive Date: 20110311
  Receipt Date: 20110302
  Transmission Date: 20110831
  Serious: Yes (Death, Hospitalization)
  Sender: FDA-Public Use
  Company Number: US-CELGENEUS-163-20785-10102440

PATIENT
  Sex: Male

DRUGS (6)
  1. THALOMID [Suspect]
     Indication: MULTIPLE MYELOMA
     Dosage: 200 MILLIGRAM
     Route: 048
     Dates: start: 20100902, end: 20100922
  2. FENTANYL [Concomitant]
     Route: 065
  3. VELCADE [Concomitant]
     Indication: MULTIPLE MYELOMA
     Route: 065
     Dates: start: 20100924, end: 20101005
  4. CLONAZEPAM [Concomitant]
     Route: 065
  5. AMLODIPINE [Concomitant]
     Route: 065
  6. DOXIL [Concomitant]
     Indication: MULTIPLE MYELOMA
     Route: 065
     Dates: start: 20100924, end: 20101005

REACTIONS (5)
  - MULTIPLE MYELOMA [None]
  - SEPSIS [None]
  - ORGAN FAILURE [None]
  - FEBRILE NEUTROPENIA [None]
  - ASTHENIA [None]
